FAERS Safety Report 8851234 (Version 2)
Quarter: 2012Q4

REPORT INFORMATION
  Report Type: 
  Country: US (occurrence: US)
  Receive Date: 20121019
  Receipt Date: 20121023
  Transmission Date: 20130627
  Serious: Yes (Other)
  Sender: FDA-Public Use
  Company Number: US-TEVA-363542USA

PATIENT
  Sex: Female

DRUGS (2)
  1. LAMOTRIGINE [Suspect]
     Indication: BIPOLAR I DISORDER
     Dosage: 400 Milligram Daily;
  2. LAMOTRIGINE [Suspect]
     Indication: AFFECTIVE DISORDER

REACTIONS (1)
  - Choking [Not Recovered/Not Resolved]
